FAERS Safety Report 6707559-X (Version None)
Quarter: 2010Q2

REPORT INFORMATION
  Report Type: 
  Country: None (occurrence: None)
  Receive Date: 20100503
  Receipt Date: 20100421
  Transmission Date: 20101027
  Serious: Yes (Other)
  Sender: FDA-Public Use
  Company Number: JP-PFIZER INC-2010047521

PATIENT
  Sex: Female

DRUGS (1)
  1. CORTRIL [Suspect]
     Indication: HYPOTHYROIDISM
     Dosage: UNK
     Route: 048

REACTIONS (1)
  - HYPOTENSION [None]
